FAERS Safety Report 6307886-4 (Version None)
Quarter: 2009Q4

REPORT INFORMATION
  Report Type: 
  Country: None (occurrence: None)
  Receive Date: 20090810
  Receipt Date: 20090724
  Transmission Date: 20100525
  Serious: Yes (Hospitalization)
  Sender: FDA-Public Use
  Company Number: ADE2009-0771

PATIENT
  Age: 73 Year
  Sex: Female

DRUGS (11)
  1. HYDROCHLOROTHIAZIDE [Suspect]
     Dosage: 25MG, DAILY, ORAL
     Route: 048
     Dates: start: 20010101, end: 20080915
  2. STUDY DRUG (CODE NOT BROKEN) [Suspect]
     Indication: OSTEOARTHRITIS
     Dosage: DAILY, ORAL
     Route: 048
     Dates: start: 20070521, end: 20080915
  3. NEXIUM [Concomitant]
  4. TUMS (CALCIUM CARBONATE) [Concomitant]
  5. CALCIUM TABLET [Concomitant]
  6. BLACK COHOSH (CIMICIFUGA RACEMOSA ROOT) [Concomitant]
  7. FOSAMAX (ALENDRONADE SODIUM) [Concomitant]
  8. NIFEREX (POLYSACCHARIDE-IRON COMPLEX) [Concomitant]
  9. FIBERCON (POLYCARBOPHIL CALCIUM) [Concomitant]
  10. MULTIVITAMINS (ERGOCALCIFEROL, ASCORBIC ACID, THIAMINE HCL, RETINOL, R [Concomitant]
  11. LOVAZA [Concomitant]

REACTIONS (10)
  - ANAEMIA [None]
  - DEHYDRATION [None]
  - DIARRHOEA [None]
  - HEPATITIS [None]
  - HYPOKALAEMIA [None]
  - HYPONATRAEMIA [None]
  - HYPOPHOSPHATAEMIA [None]
  - KIDNEY INFECTION [None]
  - RENAL FAILURE ACUTE [None]
  - UROSEPSIS [None]
